FAERS Safety Report 17690892 (Version 4)
Quarter: 2025Q4

REPORT INFORMATION
  Report Type: Report from Study
  Country: EU (occurrence: EU)
  Receive Date: 20200422
  Receipt Date: 20251028
  Transmission Date: 20260117
  Serious: Yes (Hospitalization, Other)
  Sender: AUROBINDO
  Company Number: EU-TEVA-2020-IT-1224736

PATIENT
  Age: 72 Year
  Sex: Female

DRUGS (10)
  1. IRBESARTAN [Interacting]
     Active Substance: IRBESARTAN
     Indication: Product used for unknown indication
     Dosage: UNK
     Route: 065
  2. PREGABALIN [Interacting]
     Active Substance: PREGABALIN
     Indication: Neuralgia
     Dosage: UNK
     Route: 065
  3. NABIXIMOLS [Interacting]
     Active Substance: NABIXIMOLS
     Indication: Product used for unknown indication
     Dosage: 300 MILLIGRAM
     Route: 048
  4. .DELTA.8-TETRAHYDROCANNABINOL\HERBALS [Interacting]
     Active Substance: .DELTA.8-TETRAHYDROCANNABINOL\HERBALS
     Indication: Neuralgia
     Dosage: 800 MILLIGRAM
     Route: 048
  5. CANNABIS SATIVA SUBSP. INDICA TOP [Interacting]
     Active Substance: CANNABIS SATIVA SUBSP. INDICA TOP
     Indication: Neuralgia
     Dosage: 800 MILLIGRAM
     Route: 048
  6. FENTANYL [Interacting]
     Active Substance: FENTANYL
     Indication: Product used for unknown indication
     Dosage: UNK
     Route: 065
  7. ALBUTEROL [Interacting]
     Active Substance: ALBUTEROL
     Indication: Product used for unknown indication
     Dosage: UNK
     Route: 065
  8. FLUTICASONE [Interacting]
     Active Substance: FLUTICASONE
     Indication: Product used for unknown indication
     Dosage: UNK
     Route: 065
  9. AMITRIPTYLINE [Concomitant]
     Active Substance: AMITRIPTYLINE
     Indication: Product used for unknown indication
     Dosage: UNK
     Route: 065
  10. IRBESARTAN [Interacting]
     Active Substance: IRBESARTAN
     Indication: Product used for unknown indication
     Dosage: UNK
     Route: 065

REACTIONS (9)
  - Syncope [Unknown]
  - Hypoxia [Unknown]
  - Sedation [Unknown]
  - Drug interaction [Recovered/Resolved]
  - Hospitalisation [Unknown]
  - Hallucination, visual [Recovered/Resolved]
  - Dysphoria [Recovered/Resolved]
  - Somnolence [Recovered/Resolved]
  - Accidental overdose [Recovered/Resolved]
